FAERS Safety Report 9792845 (Version 1)
Quarter: 2014Q1

REPORT INFORMATION
  Report Type: Spontaneous
  Country: US (occurrence: US)
  Receive Date: 20140102
  Receipt Date: 20140102
  Transmission Date: 20141002
  Serious: No
  Sender: FDA-Public Use
  Company Number: US-SA-2013SA126184

PATIENT
  Sex: Female

DRUGS (1)
  1. AUBAGIO [Suspect]
     Indication: MULTIPLE SCLEROSIS
     Route: 065
     Dates: start: 20131029

REACTIONS (5)
  - Hot flush [Unknown]
  - Arthralgia [Unknown]
  - Pain [Unknown]
  - Mood swings [Unknown]
  - Myalgia [Unknown]
